FAERS Safety Report 9262569 (Version 3)
Quarter: 2014Q2

REPORT INFORMATION
  Report Type: Spontaneous
  Country: US (occurrence: US)
  Receive Date: 20130430
  Receipt Date: 20140521
  Transmission Date: 20141212
  Serious: Yes (Hospitalization)
  Sender: FDA-Public Use
  Company Number: US-BAYER-2013-052064

PATIENT
  Age: 28 Year
  Sex: Female
  Weight: 67.57 kg

DRUGS (4)
  1. GIANVI [Suspect]
     Indication: CONTRACEPTION
     Dosage: UNK
     Dates: start: 201006, end: 20100929
  2. YAZ [Suspect]
     Indication: CONTRACEPTION
     Dosage: UNK
     Dates: start: 20080730, end: 201006
  3. YAZ [Suspect]
     Indication: CONTRACEPTION
     Dosage: UNK
     Dates: start: 2007, end: 201006
  4. SYNTHROID [Concomitant]
     Dosage: 112 MCG EVERY MORNING QD
     Route: 048

REACTIONS (9)
  - Pulmonary embolism [None]
  - Deep vein thrombosis [None]
  - Pelvic venous thrombosis [None]
  - Injury [None]
  - Pain [None]
  - Pain in extremity [None]
  - Dyspnoea [None]
  - Peripheral swelling [None]
  - Abdominal pain upper [None]
